FAERS Safety Report 17982786 (Version 1)
Quarter: 2020Q3

REPORT INFORMATION
  Report Type: Spontaneous
  Country: US (occurrence: US)
  Receive Date: 20200702
  Receipt Date: 20200702
  Transmission Date: 20201103
  Serious: Yes (Other)
  Sender: FDA-Public Use
  Company Number: None

PATIENT
  Age: 65 Year
  Sex: Female

DRUGS (1)
  1. XOLAIR [Suspect]
     Active Substance: OMALIZUMAB
     Dosage: ?          OTHER FREQUENCY:EVERY 5 WEEKS;?
     Route: 058
     Dates: start: 20180209

REACTIONS (1)
  - Lower limb fracture [None]

NARRATIVE: CASE EVENT DATE: 20200701
